FAERS Safety Report 21192075 (Version 1)
Quarter: 2022Q3

REPORT INFORMATION
  Report Type: Spontaneous
  Country: US (occurrence: US)
  Receive Date: 20220809
  Receipt Date: 20220809
  Transmission Date: 20221026
  Serious: No
  Sender: FDA-Public Use
  Company Number: US-ENDO PHARMACEUTICALS INC-2021-010512

PATIENT
  Age: 71 Year
  Sex: Male
  Weight: 72.562 kg

DRUGS (2)
  1. TESTOPEL [Suspect]
     Active Substance: TESTOSTERONE
     Indication: Androgen replacement therapy
     Dosage: UNK UNKNOWN, UNKNOWN
     Route: 065
     Dates: start: 20210714
  2. TESTOPEL [Suspect]
     Active Substance: TESTOSTERONE
     Indication: Androgen replacement therapy
     Dosage: UNK UNKNOWN, UNKNOWN
     Route: 065
     Dates: start: 20210714

REACTIONS (2)
  - Unevaluable event [Not Recovered/Not Resolved]
  - Device dislocation [Not Recovered/Not Resolved]

NARRATIVE: CASE EVENT DATE: 20210714
